FAERS Safety Report 20707839 (Version 1)
Quarter: 2022Q2

REPORT INFORMATION
  Report Type: Spontaneous
  Country: JP (occurrence: JP)
  Receive Date: 20220414
  Receipt Date: 20220414
  Transmission Date: 20220720
  Serious: Yes (Other)
  Sender: FDA-Public Use
  Company Number: JP-TAKEDA-2022TUS024079

PATIENT
  Age: 27 Year
  Sex: Male

DRUGS (6)
  1. INTUNIV [Suspect]
     Active Substance: GUANFACINE HYDROCHLORIDE
     Indication: Attention deficit hyperactivity disorder
     Dosage: 6 MILLIGRAM, QD
     Route: 048
     Dates: start: 20211014
  2. BEPOTASTINE BESYLATE [Suspect]
     Active Substance: BEPOTASTINE BESYLATE
     Indication: Dermatitis atopic
     Dosage: 20 MICROGRAM, QD
     Route: 048
  3. TRANEXAMIC ACID [Suspect]
     Active Substance: TRANEXAMIC ACID
     Indication: Attention deficit hyperactivity disorder
     Dosage: 250 MILLIGRAM, QD
     Route: 048
     Dates: start: 202110
  4. CLOBETASOL [Suspect]
     Active Substance: CLOBETASOL
     Indication: Dermatitis atopic
     Dosage: 20 GRAM, QD
     Route: 050
  5. DIFLUPREDNATE [Suspect]
     Active Substance: DIFLUPREDNATE
     Indication: Dermatitis atopic
     Dosage: 20 GRAM, QD
     Route: 050
  6. BETAMETHASONE DIPROPIONATE [Suspect]
     Active Substance: BETAMETHASONE DIPROPIONATE
     Indication: Dermatitis atopic
     Dosage: 10 MILLILITER, QD
     Route: 050

REACTIONS (1)
  - Blood creatine phosphokinase increased [Recovering/Resolving]

NARRATIVE: CASE EVENT DATE: 20220404
